FAERS Safety Report 20754969 (Version 2)
Quarter: 2022Q2

REPORT INFORMATION
  Report Type: Spontaneous
  Country: FR (occurrence: FR)
  Receive Date: 20220427
  Receipt Date: 20220429
  Transmission Date: 20220721
  Serious: Yes (Hospitalization, Other)
  Sender: FDA-Public Use
  Company Number: FR-MLMSERVICE-20220407-3490432-1

PATIENT
  Age: 12 Year
  Sex: Male

DRUGS (4)
  1. ACETAMINOPHEN [Suspect]
     Active Substance: ACETAMINOPHEN
     Indication: Vomiting
     Dosage: 30 MILLIGRAM/KILOGRAM, TOTAL (TWO INTAKES (15 MG/KG EVERY 6 H) AND THE SECOND ONE 4 H BEFORE ADMISSI
     Route: 054
  2. ACETAMINOPHEN [Suspect]
     Active Substance: ACETAMINOPHEN
     Indication: Pyrexia
     Dosage: 2 DOSAGE FORM, TOTAL (FIVE INTAKES OF PARACETAMOL, TWICE ORALLY AND THEN INTRARECTALLY)
     Route: 048
  3. ACETAMINOPHEN [Suspect]
     Active Substance: ACETAMINOPHEN
     Dosage: 1200 MILLIGRAM, TOTAL (600 MG AT 22:30 AND AT 4:00)
     Route: 042
  4. ACETAMINOPHEN [Suspect]
     Active Substance: ACETAMINOPHEN
     Dosage: 3 DOSAGE FORM, TOTAL (FIVE INTAKES OF PARACETAMOL, TWICE ORALLY AND THEN INTRARECTALLY)
     Route: 054

REACTIONS (4)
  - Enterocolitis [Recovered/Resolved]
  - Drug hypersensitivity [Recovered/Resolved]
  - Methaemoglobinaemia [Recovered/Resolved]
  - Respiratory alkalosis [Recovered/Resolved]
